FAERS Safety Report 8124742-X (Version None)
Quarter: 2012Q1

REPORT INFORMATION
  Report Type: 
  Country: None (occurrence: None)
  Receive Date: 20120209
  Receipt Date: 20120206
  Transmission Date: 20120608
  Serious: Yes (Death)
  Sender: FDA-Public Use
  Company Number: US-PFIZER INC-2011308744

PATIENT
  Age: 61 Year
  Sex: Male

DRUGS (3)
  1. DILTIAZEM HCL [Suspect]
     Indication: COMPLETED SUICIDE
     Route: 048
  2. METOPROLOL [Suspect]
     Indication: COMPLETED SUICIDE
     Route: 048
  3. ATENOLOL [Suspect]
     Indication: COMPLETED SUICIDE
     Route: 048

REACTIONS (1)
  - COMPLETED SUICIDE [None]
